FAERS Safety Report 12541687 (Version 2)
Quarter: 2016Q3

REPORT INFORMATION
  Report Type: Report from Study
  Country: US (occurrence: US)
  Receive Date: 20160708
  Receipt Date: 20160721
  Transmission Date: 20161109
  Serious: Yes (Hospitalization, Other)
  Sender: FDA-Public Use
  Company Number: US-ELI_LILLY_AND_COMPANY-US201604004474

PATIENT
  Age: 82 Year
  Sex: Female

DRUGS (3)
  1. FORTEO [Suspect]
     Active Substance: TERIPARATIDE
     Indication: OSTEOPOROSIS
     Dosage: 20 UG, UNKNOWN
     Route: 058
     Dates: start: 20160402
  2. FORTEO [Suspect]
     Active Substance: TERIPARATIDE
     Dosage: 20 UG, UNKNOWN
     Route: 058
     Dates: start: 20160402
  3. FORTEO [Suspect]
     Active Substance: TERIPARATIDE
     Dosage: 20 UG, UNKNOWN
     Route: 058
     Dates: start: 20160528, end: 20160623

REACTIONS (21)
  - Cardiac disorder [Not Recovered/Not Resolved]
  - Aphasia [Recovered/Resolved]
  - Nausea [Recovering/Resolving]
  - Orthostatic hypotension [Recovered/Resolved]
  - Stress [Unknown]
  - Malaise [Unknown]
  - Headache [Not Recovered/Not Resolved]
  - Insomnia [Unknown]
  - Dizziness [Unknown]
  - Pruritus [Recovered/Resolved]
  - Diarrhoea [Unknown]
  - Diarrhoea [Recovered/Resolved]
  - Muscular weakness [Unknown]
  - Nausea [Unknown]
  - Pulmonary fibrosis [Not Recovered/Not Resolved]
  - Headache [Unknown]
  - Asthenia [Recovering/Resolving]
  - Chest pain [Unknown]
  - Hypoglycaemia [Recovered/Resolved]
  - Fatigue [Unknown]
  - Dizziness [Recovering/Resolving]

NARRATIVE: CASE EVENT DATE: 20160404
